FAERS Safety Report 5515038-0 (Version None)
Quarter: 2007Q4

REPORT INFORMATION
  Report Type: 
  Country: None (occurrence: None)
  Receive Date: 20071113
  Receipt Date: 20061127
  Transmission Date: 20080405
  Serious: No
  Sender: FDA-Public Use
  Company Number: A0628699A

PATIENT
  Age: 59 Year
  Sex: Male

DRUGS (5)
  1. COREG [Suspect]
     Indication: HYPERTENSION
     Dosage: 12.5MG TWICE PER DAY
     Route: 048
     Dates: start: 20060601
  2. LISINOPRIL [Concomitant]
  3. LOVASTATIN [Concomitant]
  4. LASIX [Concomitant]
  5. AMIODARONE HCL [Concomitant]

REACTIONS (2)
  - DYSPNOEA [None]
  - HEART RATE DECREASED [None]
